FAERS Safety Report 6064155-8 (Version None)
Quarter: 2009Q1

REPORT INFORMATION
  Report Type: 
  Country: None (occurrence: None)
  Receive Date: 20090204
  Receipt Date: 20090127
  Transmission Date: 20090719
  Serious: Yes (Other)
  Sender: FDA-Public Use
  Company Number: US-BAYER-200911997NA

PATIENT
  Age: 28 Year
  Sex: Female

DRUGS (2)
  1. MIRENA [Suspect]
     Indication: CONTRACEPTION
     Route: 015
     Dates: start: 20071227, end: 20081002
  2. MIRENA [Suspect]
     Route: 015
     Dates: start: 20081211

REACTIONS (2)
  - IUD MIGRATION [None]
  - VAGINAL HAEMORRHAGE [None]
